FAERS Safety Report 4518232-0 (Version None)
Quarter: 2004Q4

REPORT INFORMATION
  Report Type: 
  Country: None (occurrence: None)
  Receive Date: 20041130
  Receipt Date: 20041112
  Transmission Date: 20050328
  Serious: Yes (Hospitalization)
  Sender: FDA-Public Use
  Company Number: USA040978971

PATIENT
  Age: 79 Year
  Sex: Female

DRUGS (9)
  1. CYMBALTA [Suspect]
     Indication: DEPRESSION
     Dosage: 30 MG DAY
     Dates: start: 20040901, end: 20040901
  2. AXERT [Concomitant]
  3. PREMARIN [Concomitant]
  4. AXID [Concomitant]
  5. LIDODERM (LIDOCAINE) [Concomitant]
  6. TEGASEROD [Concomitant]
  7. TROLAMINE [Concomitant]
  8. HYDROCHLOROTHIAZIDE [Concomitant]
  9. XANAX (ALPRAZOLAM DUM) [Concomitant]

REACTIONS (4)
  - CHEST PAIN [None]
  - CHILLS [None]
  - MALLORY-WEISS SYNDROME [None]
  - PYREXIA [None]
